FAERS Safety Report 8259601-5 (Version None)
Quarter: 2012Q2

REPORT INFORMATION
  Report Type: 
  Country: None (occurrence: None)
  Receive Date: 20120404
  Receipt Date: 20120327
  Transmission Date: 20120825
  Serious: Yes (Other)
  Sender: FDA-Public Use
  Company Number: PHHY2011US45663

PATIENT
  Sex: Female
  Weight: 54.875 kg

DRUGS (2)
  1. EXJADE [Suspect]
     Indication: IRON OVERLOAD
     Dosage: 500 MG, QD
     Route: 048
     Dates: start: 20071031
  2. EXJADE [Suspect]
     Dosage: 500 MG THREE TIMES A WEEK
     Route: 048
     Dates: start: 20080101

REACTIONS (2)
  - UPPER RESPIRATORY TRACT INFECTION [None]
  - OSTEOMYELITIS [None]
